FAERS Safety Report 20565753 (Version 5)
Quarter: 2024Q1

REPORT INFORMATION
  Report Type: Spontaneous
  Country: US (occurrence: US)
  Receive Date: 20220308
  Receipt Date: 20240130
  Transmission Date: 20240409
  Serious: No
  Sender: FDA-Public Use
  Company Number: US-SA-SAC20220302000104

PATIENT
  Age: 6 Year
  Sex: Male

DRUGS (6)
  1. DUPIXENT [Suspect]
     Active Substance: DUPILUMAB
     Indication: Dermatitis atopic
     Dosage: 200 MG, QOW
     Route: 058
     Dates: start: 20211026
  2. DUPIXENT [Suspect]
     Active Substance: DUPILUMAB
     Dosage: 300 MG, QOW
     Route: 058
  3. FLOVENT [Suspect]
     Active Substance: FLUTICASONE PROPIONATE
     Dosage: UNK, QD
  4. AQUAPHOR (XIPAMIDE) [Concomitant]
     Active Substance: XIPAMIDE
     Indication: Dry skin prophylaxis
  5. PARAFFIN [Concomitant]
     Active Substance: PARAFFIN
     Indication: Dry skin prophylaxis
  6. PIMECROLIMUS [Concomitant]
     Active Substance: PIMECROLIMUS
     Indication: Dry skin prophylaxis

REACTIONS (18)
  - Infection [Not Recovered/Not Resolved]
  - Skin haemorrhage [Not Recovered/Not Resolved]
  - Skin fissures [Recovering/Resolving]
  - Anxiety [Not Recovered/Not Resolved]
  - Oral mucosal erythema [Not Recovered/Not Resolved]
  - Skin discolouration [Unknown]
  - Ear infection [Not Recovered/Not Resolved]
  - Dry mouth [Unknown]
  - Pharyngitis streptococcal [Not Recovered/Not Resolved]
  - Eczema [Unknown]
  - Pruritus [Recovered/Resolved]
  - Erythema of eyelid [Not Recovered/Not Resolved]
  - Ocular hyperaemia [Not Recovered/Not Resolved]
  - Dermatitis atopic [Recovered/Resolved]
  - Rash [Recovering/Resolving]
  - Eye pruritus [Recovered/Resolved]
  - Rash macular [Unknown]
  - Inappropriate schedule of product administration [Unknown]

NARRATIVE: CASE EVENT DATE: 20230101
